FAERS Safety Report 8235532-1 (Version None)
Quarter: 2012Q1

REPORT INFORMATION
  Report Type: 
  Country: None (occurrence: None)
  Receive Date: 20120323
  Receipt Date: 20120314
  Transmission Date: 20120608
  Serious: Yes (Hospitalization)
  Sender: FDA-Public Use
  Company Number: JPI-P-020364

PATIENT
  Age: 32 Year
  Sex: Male
  Weight: 72.5755 kg

DRUGS (6)
  1. LITHIUM CARBONATE [Concomitant]
  2. OLANZAPINE [Concomitant]
  3. ALPRAZOLAM [Concomitant]
  4. TRAMADOL HCL [Concomitant]
  5. AMPHEAMINE, DEXTROAMPHETAMINE MIXED SALTS [Concomitant]
  6. XYREM [Suspect]
     Indication: CATAPLEXY
     Dosage: ORAL ; 9 GM (4.5 GM,2 IN 1 D),ORAL
     Route: 048
     Dates: start: 20071023

REACTIONS (6)
  - VOLVULUS [None]
  - LACERATION [None]
  - FALL [None]
  - PANIC ATTACK [None]
  - DYSPNOEA [None]
  - CHEST DISCOMFORT [None]
